FAERS Safety Report 18352513 (Version 1)
Quarter: 2020Q4

REPORT INFORMATION
  Report Type: Report from Study
  Country: None (occurrence: CA)
  Receive Date: 20201007
  Receipt Date: 20201007
  Transmission Date: 20210114
  Serious: Yes (Hospitalization)
  Sender: FDA-Public Use
  Company Number: CA-ABBVIE-20K-028-3595215-00

PATIENT
  Sex: Female

DRUGS (1)
  1. HUMIRA [Suspect]
     Active Substance: ADALIMUMAB
     Indication: CROHN^S DISEASE
     Route: 058
     Dates: start: 20190415

REACTIONS (2)
  - Addison^s disease [Not Recovered/Not Resolved]
  - Pathological fracture [Not Recovered/Not Resolved]

NARRATIVE: CASE EVENT DATE: 2020
